FAERS Safety Report 9306552 (Version 4)
Quarter: 2013Q4

REPORT INFORMATION
  Report Type: Report from Study
  Country: US (occurrence: US)
  Receive Date: 20130523
  Receipt Date: 20131104
  Transmission Date: 20140711
  Serious: Yes (Hospitalization)
  Sender: FDA-Public Use
  Company Number: US-FRI-1000045162

PATIENT
  Age: 72 Year
  Sex: Male
  Weight: 77.27 kg

DRUGS (11)
  1. LISINOPRIL [Concomitant]
     Indication: HYPERTENSION
     Dosage: 10 MG
     Route: 048
     Dates: start: 20080108
  2. TRILIPIX [Concomitant]
     Indication: DYSLIPIDAEMIA
     Dosage: 135 MG
     Route: 048
     Dates: start: 20091008
  3. PRILOSEC [Concomitant]
     Indication: GASTROOESOPHAGEAL REFLUX DISEASE
     Dosage: 20 MG
     Route: 048
     Dates: start: 20091008
  4. CENTRUM VITAMIN [Concomitant]
     Indication: PROPHYLAXIS
     Dosage: 1 TABLET
     Route: 048
     Dates: start: 20100308
  5. SPIRIVA [Concomitant]
     Indication: CHRONIC OBSTRUCTIVE PULMONARY DISEASE
     Dosage: 18 MCG
     Route: 055
     Dates: start: 20100415
  6. ADVAIR [Concomitant]
     Indication: CHRONIC OBSTRUCTIVE PULMONARY DISEASE
     Dosage: 500/100 MG
     Route: 055
     Dates: start: 20110111
  7. CRESTOR [Concomitant]
     Indication: DYSLIPIDAEMIA
     Dosage: 10 MG
     Route: 048
     Dates: start: 20110111
  8. POTASSIUM CITRATE [Concomitant]
     Indication: HYPOKALAEMIA
     Dosage: 10 MEQ
     Route: 048
     Dates: start: 2008
  9. OMEGA 3 [Concomitant]
     Indication: DYSLIPIDAEMIA
     Dosage: 2668 MG
     Route: 048
     Dates: start: 20110128
  10. PHENERGAN WITH CODEINE [Concomitant]
     Indication: CHRONIC OBSTRUCTIVE PULMONARY DISEASE
     Route: 048
     Dates: start: 20130225
  11. ROFLUMILAST [Suspect]
     Indication: CHRONIC OBSTRUCTIVE PULMONARY DISEASE
     Dosage: 500 MCG
     Route: 048
     Dates: start: 20130319, end: 20130511

REACTIONS (1)
  - Chronic obstructive pulmonary disease [Recovered/Resolved]
